FAERS Safety Report 5775571-3 (Version None)
Quarter: 2008Q2

REPORT INFORMATION
  Report Type: 
  Country: None (occurrence: None)
  Receive Date: 20080617
  Receipt Date: 20080606
  Transmission Date: 20081010
  Serious: Yes (Other)
  Sender: FDA-Public Use
  Company Number: AU-SANOFI-SYNTHELABO-A01200701515

PATIENT
  Sex: Female

DRUGS (3)
  1. LUVOX [Concomitant]
     Indication: ANXIETY
     Dosage: 150 MG
     Route: 048
     Dates: start: 20061123
  2. ALCOHOL [Interacting]
     Indication: ALCOHOL USE
     Dosage: UNK
     Route: 048
  3. STILNOX [Suspect]
     Indication: DRUG USE FOR UNKNOWN INDICATION
     Dosage: 10 MG
     Route: 048

REACTIONS (4)
  - ALCOHOL INTERACTION [None]
  - BACK PAIN [None]
  - FALL [None]
  - FRACTURED SACRUM [None]
